FAERS Safety Report 16877547 (Version 1)
Quarter: 2019Q4

REPORT INFORMATION
  Report Type: Spontaneous
  Country: US (occurrence: US)
  Receive Date: 20191002
  Receipt Date: 20191002
  Transmission Date: 20200122
  Serious: Yes (Hospitalization)
  Sender: FDA-Public Use
  Company Number: None

PATIENT
  Age: 75 Year
  Sex: Female
  Weight: 70.2 kg

DRUGS (10)
  1. ALVIMOPAN 12MG [Concomitant]
     Dates: start: 20181012, end: 20181012
  2. MIDAZOLAM 2MG [Concomitant]
     Dates: start: 20181012, end: 20181012
  3. MAGNESIUM 4G [Concomitant]
     Dates: start: 20181012, end: 20181012
  4. KETAMINE 150MG [Concomitant]
     Dates: start: 20181012, end: 20181012
  5. GABAPENTIN 300MG [Concomitant]
     Active Substance: GABAPENTIN
     Dates: start: 20181012, end: 20181012
  6. HEPARIN 5,000 UNITS [Concomitant]
     Dates: start: 20181012, end: 20181012
  7. CEFOXITIN 2G [Concomitant]
     Dates: start: 20181012, end: 20181012
  8. CELECOXIB 200MG [Concomitant]
     Active Substance: CELECOXIB
     Dates: start: 20181012, end: 20181012
  9. LIDOCAINE. [Suspect]
     Active Substance: LIDOCAINE
     Indication: POSTOPERATIVE ANALGESIA
     Dosage: ?          OTHER FREQUENCY:1MG/MIN;?
     Route: 041
     Dates: start: 20181012, end: 20181013
  10. ACETAMINOPHEN 1G [Concomitant]
     Dates: start: 20181012, end: 20181012

REACTIONS (2)
  - Diplopia [None]
  - Hallucination, visual [None]

NARRATIVE: CASE EVENT DATE: 20181012
